FAERS Safety Report 9165455 (Version 1)
Quarter: 2013Q1

REPORT INFORMATION
  Report Type: Spontaneous
  Country: FR (occurrence: None)
  Receive Date: 20130301
  Receipt Date: 20130301
  Transmission Date: 20140127
  Serious: Yes (Hospitalization)
  Sender: FDA-Public Use
  Company Number: SYM-2013-00941

PATIENT
  Age: 55 Year
  Sex: Male

DRUGS (5)
  1. FLAGYL (METRONIDAZOLE) (UNKNOWN) (METRONIDAZOLE) [Suspect]
     Indication: PRODUCT USED FOR UNKNOWN INDICATION
     Route: 048
     Dates: start: 20110919, end: 20110924
  2. DIALGIREX (APOREX) (CAPSULES) (PARACETAMOL, DEXTROPROPOXYPHENE HYDROCHLORIDE) [Suspect]
     Indication: PRODUCT USED FOR UNKNOWN INDICATION
     Route: 048
     Dates: start: 20110924, end: 20110924
  3. YELLOW FEVER VACCINE (YELLOW FEVER VACCINE) (UNKNOWN) (YELLOW FEVER VACCINE) [Suspect]
     Indication: PRODUCT USED FOR UNKNOWN INDICATION
     Route: 050
     Dates: start: 20110910, end: 20110910
  4. IBUPROFEN [Suspect]
     Indication: PRODUCT USED FOR UNKNOWN INDICATION
     Route: 048
     Dates: start: 20110924, end: 20110924
  5. TIOFRAN (ACETORPHAN) (UNKNOWN) (ACETORPHAN) [Suspect]
     Indication: PRODUCT USED FOR UNKNOWN INDICATION
     Route: 048
     Dates: start: 20110919, end: 20110924

REACTIONS (3)
  - Urticaria [None]
  - Diarrhoea [None]
  - Genital lesion [None]
